FAERS Safety Report 9781699 (Version 1)
Quarter: 2013Q4

REPORT INFORMATION
  Report Type: Spontaneous
  Country: US (occurrence: US)
  Receive Date: 20131224
  Receipt Date: 20131224
  Transmission Date: 20140711
  Serious: No
  Sender: FDA-Public Use
  Company Number: US-TEVA-450429USA

PATIENT
  Sex: Female
  Weight: 90.8 kg

DRUGS (14)
  1. NUVIGIL [Suspect]
     Indication: SLEEP APNOEA SYNDROME
     Dosage: 250 MILLIGRAM DAILY;
  2. NUVIGIL [Suspect]
     Dosage: 500 MILLIGRAM DAILY;
  3. MORPHINE PUMP [Concomitant]
     Indication: BACK PAIN
  4. TRAZODONE [Concomitant]
     Indication: INSOMNIA
     Dosage: 50 MILLIGRAM DAILY;
     Route: 048
  5. TOPROL [Concomitant]
     Indication: HEART RATE INCREASED
     Dosage: 25 MILLIGRAM DAILY;
     Route: 048
  6. VITAMIN D [Concomitant]
     Indication: VITAMIN SUPPLEMENTATION
     Route: 048
  7. PROLIA [Concomitant]
     Indication: OSTEOPOROSIS
  8. FLONASE [Concomitant]
     Indication: CHRONIC SINUSITIS
  9. ADVAIR [Concomitant]
     Indication: CHRONIC OBSTRUCTIVE PULMONARY DISEASE
  10. VENTOLIN [Concomitant]
     Indication: CHRONIC OBSTRUCTIVE PULMONARY DISEASE
  11. OMEPRAZOLE [Concomitant]
     Indication: GASTRIC DISORDER
     Dosage: 20 MILLIGRAM DAILY;
     Route: 048
  12. PROCHLORPERAZINE [Concomitant]
     Indication: GASTRIC DISORDER
     Dosage: 20 MILLIGRAM DAILY;
     Route: 048
  13. SIMVASTATIN [Concomitant]
     Indication: BLOOD CHOLESTEROL
     Dosage: 40 MILLIGRAM DAILY;
     Route: 048
  14. ESCITALOPRAM [Concomitant]
     Indication: DEPRESSION
     Dosage: 10 MILLIGRAM DAILY;
     Route: 048

REACTIONS (5)
  - Hypotonia [Not Recovered/Not Resolved]
  - Logorrhoea [Recovered/Resolved]
  - Somnolence [Not Recovered/Not Resolved]
  - Drug effect decreased [Unknown]
  - Inappropriate schedule of drug administration [Unknown]
